FAERS Safety Report 13622294 (Version 3)
Quarter: 2017Q3

REPORT INFORMATION
  Report Type: Spontaneous
  Country: SI (occurrence: SI)
  Receive Date: 20170607
  Receipt Date: 20170801
  Transmission Date: 20171127
  Serious: Yes (Hospitalization, Other)
  Sender: FDA-Public Use
  Company Number: SI-AMGEN-SVNSP2017083407

PATIENT
  Age: 79 Year
  Sex: Female
  Weight: 63 kg

DRUGS (7)
  1. PLIVIT D3 [Concomitant]
     Active Substance: CHOLECALCIFEROL
     Indication: OSTEOPOROSIS
     Dosage: UNK UNK, QWK
     Dates: start: 20070111
  2. VITAMIN D [Concomitant]
     Active Substance: CHOLECALCIFEROL
     Indication: OSTEOPOROSIS
     Dosage: UNK
     Dates: start: 2009
  3. PRENEWEL [Concomitant]
     Active Substance: INDAPAMIDE\PERINDOPRIL ERBUMINE
     Indication: HYPERTENSION
     Dosage: UNK UNK, QD
     Dates: start: 20071105
  4. CONCOR COR [Concomitant]
     Active Substance: BISOPROLOL FUMARATE
     Indication: HYPERTENSION
     Dosage: 2.5 MG, QD
     Dates: start: 20110117
  5. PROLIA [Suspect]
     Active Substance: DENOSUMAB
     Indication: OSTEOPOROSIS POSTMENOPAUSAL
     Dosage: 60 MG, Q6MO
     Route: 058
     Dates: start: 20120306
  6. NOLPAZA [Concomitant]
     Active Substance: PANTOPRAZOLE SODIUM
     Indication: GASTRITIS
     Dosage: 20 G, QD
     Dates: start: 20101130
  7. PRENESSA [Concomitant]
     Active Substance: PERINDOPRIL
     Indication: HYPERTENSION
     Dosage: 4 G, QD
     Dates: start: 20071105

REACTIONS (3)
  - Hip fracture [Unknown]
  - Femur fracture [Recovering/Resolving]
  - Fall [Unknown]

NARRATIVE: CASE EVENT DATE: 20170516
